FAERS Safety Report 4889776-7 (Version None)
Quarter: 2006Q1

REPORT INFORMATION
  Report Type: 
  Country: None (occurrence: None)
  Receive Date: 20060124
  Receipt Date: 20050920
  Transmission Date: 20060701
  Serious: Yes (Hospitalization, Other)
  Sender: FDA-Public Use
  Company Number: US-MERCK-0509USA03255

PATIENT
  Age: 47 Year
  Sex: Male

DRUGS (4)
  1. VIOXX [Suspect]
     Indication: GOUT
     Route: 048
     Dates: end: 20030101
  2. CATAPRES [Concomitant]
     Route: 048
     Dates: start: 19990101
  3. VASOTEC [Concomitant]
     Route: 048
  4. HYDRODIURIL [Concomitant]
     Route: 048

REACTIONS (25)
  - ARTHRALGIA [None]
  - BLOOD HOMOCYSTEINE INCREASED [None]
  - BLOOD PRESSURE INCREASED [None]
  - CAROTID ARTERY OCCLUSION [None]
  - CEREBROVASCULAR ACCIDENT [None]
  - CONDITION AGGRAVATED [None]
  - CONTUSION [None]
  - CONVULSION [None]
  - COSTOCHONDRITIS [None]
  - DEPRESSION [None]
  - FALL [None]
  - GOUT [None]
  - HEADACHE [None]
  - HYPERCHOLESTEROLAEMIA [None]
  - HYPOAESTHESIA [None]
  - INTERNATIONAL NORMALISED RATIO INCREASED [None]
  - JOINT SWELLING [None]
  - MUSCLE SPASTICITY [None]
  - MUSCULAR WEAKNESS [None]
  - MUSCULOSKELETAL CHEST PAIN [None]
  - NASOPHARYNGITIS [None]
  - PAIN IN EXTREMITY [None]
  - RHINORRHOEA [None]
  - THROMBOTIC STROKE [None]
  - TUBERCULOSIS [None]
